FAERS Safety Report 8304296-5 (Version None)
Quarter: 2012Q2

REPORT INFORMATION
  Report Type: 
  Country: None (occurrence: None)
  Receive Date: 20120423
  Receipt Date: 20120423
  Transmission Date: 20120825
  Serious: Yes (Other)
  Sender: FDA-Public Use
  Company Number: None

PATIENT
  Age: 29 Year
  Sex: Female
  Weight: 108.86 kg

DRUGS (2)
  1. LO LOESTRIN FE [Concomitant]
  2. LO LOESTRIN FE [Suspect]
     Indication: CONTRACEPTION
     Dosage: 1 PILL
     Route: 048
     Dates: start: 20120406, end: 20120420

REACTIONS (1)
  - METRORRHAGIA [None]
